FAERS Safety Report 5660682-3 (Version None)
Quarter: 2008Q1

REPORT INFORMATION
  Report Type: 
  Country: None (occurrence: None)
  Receive Date: 20080311
  Receipt Date: 20080229
  Transmission Date: 20080703
  Serious: Yes (Other)
  Sender: FDA-Public Use
  Company Number: JP-WYE-H02864808

PATIENT
  Age: 41 Year
  Sex: Female

DRUGS (2)
  1. PREMARIN [Suspect]
     Indication: INFERTILITY
     Dosage: UNKNOWN
     Route: 048
  2. NORGESTREL AND ETHINYL ESTRADIOL [Suspect]
     Indication: INFERTILITY
     Dosage: UNKNOWN
     Route: 048

REACTIONS (1)
  - CEREBRAL HAEMORRHAGE [None]
